FAERS Safety Report 9479199 (Version 1)
Quarter: 2013Q3

REPORT INFORMATION
  Report Type: Spontaneous
  Country: US (occurrence: US)
  Receive Date: 20130827
  Receipt Date: 20130827
  Transmission Date: 20140515
  Serious: Yes (Other)
  Sender: FDA-Public Use
  Company Number: US-TEVA-428424USA

PATIENT
  Sex: 0

DRUGS (2)
  1. NUVIGIL [Suspect]
     Indication: SLEEP APNOEA SYNDROME
  2. NUVIGIL [Suspect]
     Indication: CIRCADIAN RHYTHM SLEEP DISORDER

REACTIONS (2)
  - Atrial fibrillation [Unknown]
  - Arrhythmia [Unknown]
